FAERS Safety Report 19454417 (Version 1)
Quarter: 2021Q2

REPORT INFORMATION
  Report Type: Report from Study
  Country: CO (occurrence: CO)
  Receive Date: 20210623
  Receipt Date: 20210623
  Transmission Date: 20210717
  Serious: Yes (Other)
  Sender: FDA-Public Use
  Company Number: NVSC2020CO329874

PATIENT
  Sex: Female
  Weight: 20 kg

DRUGS (3)
  1. REVOLADE [Suspect]
     Active Substance: ELTROMBOPAG OLAMINE
     Indication: IMMUNE THROMBOCYTOPENIA
     Dosage: 25 MG, QD
     Route: 048
  2. REVOLADE [Suspect]
     Active Substance: ELTROMBOPAG OLAMINE
     Dosage: TUESDAY, THURSDAY AND ON WEEKENDS WITH 50 MG
     Route: 048
  3. REVOLADE [Suspect]
     Active Substance: ELTROMBOPAG OLAMINE
     Dosage: 25 MG, QD (2 TABLETS OF 25 MG DAILY)
     Route: 048
     Dates: start: 202001

REACTIONS (3)
  - Platelet count decreased [Recovering/Resolving]
  - Platelet count increased [Unknown]
  - Asthmatic crisis [Unknown]
